FAERS Safety Report 13258048 (Version 1)
Quarter: 2017Q1

REPORT INFORMATION
  Report Type: Spontaneous
  Country: SE (occurrence: SE)
  Receive Date: 20170221
  Receipt Date: 20170221
  Transmission Date: 20170428
  Serious: Yes (Life-Threatening, Disabling)
  Sender: FDA-Public Use
  Company Number: SE-ABBVIE-17P-150-1883142-00

PATIENT
  Age: 39 Year
  Sex: Male

DRUGS (4)
  1. ERGENYL RETARD [Suspect]
     Active Substance: VALPROIC ACID
     Indication: PRODUCT USED FOR UNKNOWN INDICATION
     Route: 048
     Dates: start: 20150422
  2. CONCERTA [Suspect]
     Active Substance: METHYLPHENIDATE HYDROCHLORIDE
     Indication: BRADYPHRENIA
     Route: 048
     Dates: end: 20170125
  3. ERGENYL RETARD [Suspect]
     Active Substance: VALPROIC ACID
     Route: 048
     Dates: end: 20160914
  4. CONCERTA [Suspect]
     Active Substance: METHYLPHENIDATE HYDROCHLORIDE
     Route: 048
     Dates: start: 20150422

REACTIONS (12)
  - Hyperhidrosis [Unknown]
  - Constipation [Unknown]
  - Poor quality sleep [Unknown]
  - Suicidal ideation [Unknown]
  - Psychomotor hyperactivity [Unknown]
  - Nausea [Unknown]
  - Anxiety [Unknown]
  - Hypoaesthesia [Unknown]
  - Paranoia [Unknown]
  - Rash [Unknown]
  - Dizziness [Unknown]
  - Disturbance in attention [Unknown]

NARRATIVE: CASE EVENT DATE: 2015
